FAERS Safety Report 4770422-8 (Version None)
Quarter: 2005Q3

REPORT INFORMATION
  Report Type: 
  Country: None (occurrence: None)
  Receive Date: 20050915
  Receipt Date: 20050602
  Transmission Date: 20060218
  Serious: No
  Sender: FDA-Public Use
  Company Number: US-GLAXOSMITHKLINE-A0560880A

PATIENT
  Age: 85 Year
  Sex: Female

DRUGS (1)
  1. ABREVA [Suspect]
     Indication: EYE DISORDER
     Dates: start: 20050601, end: 20050601

REACTIONS (3)
  - DRUG ADMINISTRATION ERROR [None]
  - EYE PAIN [None]
  - VISION BLURRED [None]
